FAERS Safety Report 12597896 (Version 1)
Quarter: 2016Q3

REPORT INFORMATION
  Report Type: Spontaneous
  Country: US (occurrence: None)
  Receive Date: 20160726
  Receipt Date: 20160726
  Transmission Date: 20161109
  Serious: Yes (Hospitalization)
  Sender: FDA-Public Use
  Company Number: None

PATIENT
  Age: 60 Year
  Sex: Female

DRUGS (1)
  1. HARVONI [Suspect]
     Active Substance: LEDIPASVIR\SOFOSBUVIR
     Indication: HEPATITIS C
     Dosage: 1 TAB DAILY ORAL
     Route: 048

REACTIONS (4)
  - Fatigue [None]
  - Polyp [None]
  - Asthenia [None]
  - Gastric disorder [None]

NARRATIVE: CASE EVENT DATE: 20160601
